FAERS Safety Report 9048405 (Version 1)
Quarter: 2013Q1

REPORT INFORMATION
  Report Type: Spontaneous
  Country: US (occurrence: None)
  Receive Date: 20130130
  Receipt Date: 20130130
  Transmission Date: 20140127
  Serious: Yes (Death)
  Sender: FDA-Public Use
  Company Number: None

PATIENT
  Age: 46 Year
  Sex: Male
  Weight: 94 kg

DRUGS (2)
  1. SODIUM PHOSPHATE [Suspect]
     Indication: CONSTIPATION
     Dates: start: 20121203, end: 20121203
  2. ENEMA [Suspect]
     Indication: CONSTIPATION
     Dates: start: 20121203, end: 20121203

REACTIONS (12)
  - Hypernatraemia [None]
  - Blood potassium increased [None]
  - Blood glucose increased [None]
  - Renal failure acute [None]
  - Blood urea increased [None]
  - Blood lactate dehydrogenase increased [None]
  - Alanine aminotransferase increased [None]
  - Blood alkaline phosphatase increased [None]
  - Hypocalcaemia [None]
  - Hyperphosphataemia [None]
  - Metabolic acidosis [None]
  - Leukocytosis [None]
